FAERS Safety Report 8614688-2 (Version None)
Quarter: 2012Q3

REPORT INFORMATION
  Report Type: 
  Country: None (occurrence: None)
  Receive Date: 20120810
  Receipt Date: 20120709
  Transmission Date: 20120928
  Serious: Yes (Other)
  Sender: FDA-Public Use
  Company Number: ACO_31020_2012

PATIENT
  Sex: Female

DRUGS (2)
  1. AMPYRA [Suspect]
  2. AMPYRA [Suspect]
     Indication: MULTIPLE SCLEROSIS
     Dosage: 10 MG, Q 12 HRS
     Dates: start: 20110726

REACTIONS (2)
  - MALAISE [None]
  - APLASTIC ANAEMIA [None]
